FAERS Safety Report 8865626 (Version 1)
Quarter: 2012Q4

REPORT INFORMATION
  Report Type: 
  Country: US (occurrence: US)
  Receive Date: 20121024
  Receipt Date: 20121024
  Transmission Date: 20130627
  Serious: No
  Sender: FDA-Public Use
  Company Number: US-AMGEN-USASP2012003977

PATIENT
  Age: 59 Year
  Sex: Female

DRUGS (6)
  1. ENBREL [Suspect]
     Indication: PRODUCT USED FOR UNKNOWN INDICATION
     Dosage: 50 mg, qwk
     Route: 058
  2. METFORMIN [Concomitant]
     Dosage: 500 mg, UNK
  3. LOVASTATIN [Concomitant]
     Dosage: 20 mg, UNK
  4. ALEVE [Concomitant]
     Dosage: 220 mg, UNK
  5. ACTOS [Concomitant]
     Dosage: 15 mg, UNK
  6. DYRENIUM [Concomitant]
     Dosage: 50 mg, UNK

REACTIONS (1)
  - Nasal congestion [Unknown]
